FAERS Safety Report 8268838-0 (Version None)
Quarter: 2012Q2

REPORT INFORMATION
  Report Type: 
  Country: None (occurrence: None)
  Receive Date: 20120409
  Receipt Date: 20120409
  Transmission Date: 20120825
  Serious: Yes (Other)
  Sender: FDA-Public Use
  Company Number: None

PATIENT
  Age: 46 Year
  Sex: Male
  Weight: 86.636 kg

DRUGS (5)
  1. CITALOPRAM HYDROBROMIDE [Concomitant]
     Indication: DEPRESSION
     Dosage: 2 TABLETS
     Route: 048
     Dates: start: 20080615, end: 20120218
  2. QUETIAPINE [Suspect]
     Indication: DEPRESSION
     Dosage: 3 TABLETS
     Route: 048
     Dates: start: 20080615, end: 20120218
  3. QUETIAPINE [Suspect]
     Indication: ANXIETY
     Dosage: 3 TABLETS
     Route: 048
     Dates: start: 20080615, end: 20120218
  4. OMEPRAZOLE [Concomitant]
     Route: 048
  5. QUETIAPINE [Concomitant]

REACTIONS (9)
  - DEPRESSION [None]
  - DIARRHOEA [None]
  - MENTAL IMPAIRMENT [None]
  - ABNORMAL BEHAVIOUR [None]
  - ABDOMINAL PAIN UPPER [None]
  - MIGRAINE [None]
  - HAEMATOCHEZIA [None]
  - TREMOR [None]
  - GASTROINTESTINAL DISORDER [None]
